FAERS Safety Report 8533287 (Version 3)
Quarter: 2012Q4

REPORT INFORMATION
  Report Type: 
  Country: FR (occurrence: FR)
  Receive Date: 20120427
  Receipt Date: 20121205
  Transmission Date: 20130627
  Serious: Yes (Death, Hospitalization, Disabling)
  Sender: FDA-Public Use
  Company Number: FR-MPIJNJ-2012-02690

PATIENT

DRUGS (3)
  1. VELCADE [Suspect]
     Indication: MULTIPLE MYELOMA
     Dosage: 2.2 mg, UNK
     Route: 042
     Dates: start: 201109, end: 201109
  2. VELCADE [Suspect]
     Dosage: 2.6 mg, UNK
     Route: 042
     Dates: start: 20111010, end: 20111114
  3. VELCADE [Suspect]
     Dosage: 2.2 mg, UNK
     Route: 042
     Dates: start: 20111117, end: 20111215

REACTIONS (2)
  - Progressive multifocal leukoencephalopathy [Fatal]
  - Septic shock [Unknown]
